FAERS Safety Report 17533295 (Version 3)
Quarter: 2020Q4

REPORT INFORMATION
  Report Type: Report from Study
  Country: US (occurrence: US)
  Receive Date: 20200312
  Receipt Date: 20201218
  Transmission Date: 20210113
  Serious: Yes (Other)
  Sender: FDA-Public Use
  Company Number: US-PFIZER INC-2020032136

PATIENT
  Age: 52 Year
  Sex: Female

DRUGS (3)
  1. XELJANZ [Suspect]
     Active Substance: TOFACITINIB CITRATE
     Dosage: 5 MG
     Dates: start: 202008
  2. XELJANZ [Suspect]
     Active Substance: TOFACITINIB CITRATE
     Dosage: 5 MG, UNK
     Dates: start: 201912
  3. PREDNISONE. [Suspect]
     Active Substance: PREDNISONE

REACTIONS (13)
  - Muscle spasms [Unknown]
  - Rash [Unknown]
  - Drug ineffective [Unknown]
  - Hypoaesthesia [Unknown]
  - Seizure [Unknown]
  - Tongue biting [Unknown]
  - Pain in extremity [Not Recovered/Not Resolved]
  - Sensitivity to weather change [Unknown]
  - Malaise [Unknown]
  - Influenza [Not Recovered/Not Resolved]
  - Swelling [Unknown]
  - Weight increased [Unknown]
  - Pain [Unknown]
